FAERS Safety Report 4860653-0 (Version None)
Quarter: 2005Q4

REPORT INFORMATION
  Report Type: 
  Country: None (occurrence: None)
  Receive Date: 20051216
  Receipt Date: 20051122
  Transmission Date: 20060501
  Serious: Yes (Disabling, Other)
  Sender: FDA-Public Use
  Company Number: 200510410BWH

PATIENT
  Age: 65 Year
  Sex: Male

DRUGS (12)
  1. CIPRO [Suspect]
     Indication: URINARY TRACT INFECTION
     Dosage: SEE IMAGE
     Route: 048
     Dates: start: 19991030, end: 19991108
  2. CIPRO [Suspect]
     Indication: URINARY TRACT INFECTION
     Dosage: SEE IMAGE
     Route: 048
     Dates: start: 20050303
  3. CIPROFLOXACIN [Suspect]
     Indication: URINARY TRACT INFECTION
     Dosage: SEE IMAGE
     Route: 048
     Dates: start: 20040401, end: 20040414
  4. CIPROFLOXACIN [Suspect]
     Indication: URINARY TRACT INFECTION
     Dosage: SEE IMAGE
     Route: 048
     Dates: start: 19960502
  5. LEVQAQUIN (LEVOFLOXACIN) [Suspect]
     Dosage: SEE IMAGE
     Dates: start: 20001228
  6. LEVQAQUIN (LEVOFLOXACIN) [Suspect]
     Dosage: SEE IMAGE
     Dates: start: 20050205
  7. TEQUIN [Suspect]
     Dates: start: 20030308
  8. DIGITEK [Concomitant]
  9. DEPO-TESTOSTERONE [Concomitant]
  10. ASPIRIN [Concomitant]
  11. LEVOTHROID [Concomitant]
  12. CORTISONE ACETATE TAB [Concomitant]

REACTIONS (10)
  - AMNESIA [None]
  - ARRHYTHMIA [None]
  - ARTHRALGIA [None]
  - BACK PAIN [None]
  - EYE PAIN [None]
  - OCULAR HYPERAEMIA [None]
  - PAIN IN JAW [None]
  - ROTATOR CUFF SYNDROME [None]
  - TENDON RUPTURE [None]
  - VISUAL ACUITY REDUCED [None]
